FAERS Safety Report 5470603-4 (Version None)
Quarter: 2007Q3

REPORT INFORMATION
  Report Type: 
  Country: None (occurrence: None)
  Receive Date: 20070928
  Receipt Date: 20070920
  Transmission Date: 20080115
  Serious: Yes (Hospitalization)
  Sender: FDA-Public Use
  Company Number: HQWYE494410AUG07

PATIENT
  Sex: Male

DRUGS (13)
  1. CEFIXIME CHEWABLE [Suspect]
     Indication: PYREXIA
     Route: 048
     Dates: start: 20070622, end: 20070625
  2. TARGOCID [Suspect]
     Indication: PYREXIA
     Dosage: 400 MG, UNKNOWN FREQUENCY
     Route: 042
     Dates: start: 20070623, end: 20070625
  3. ZELITREX [Suspect]
     Indication: LEUKAEMIA
     Dosage: 2 DOSAGE FORMS, UNKNOWN FREQUENCY
     Route: 048
     Dates: start: 20070612, end: 20070625
  4. ZELITREX [Suspect]
     Dosage: UNKNOWN DOSE AND FREQUENCY
     Route: 048
     Dates: start: 20040702, end: 20070704
  5. BACTRIM [Suspect]
     Indication: PYREXIA
     Dosage: 5 DOSAGE FORMS, UNKNOWN FREQUENCY
     Route: 048
     Dates: start: 20070612, end: 20070622
  6. DAPSONE [Concomitant]
     Dosage: UNKNOWN DOSE AND FREQUENCY
     Route: 065
     Dates: start: 20070624, end: 20070624
  7. OMEPRAZOLE [Suspect]
     Dosage: 1 DOSAGE FORM, UNKNOWN FREQUENCY
     Route: 048
     Dates: start: 20070623, end: 20070624
  8. GRANOCYTE [Concomitant]
     Dosage: UNKNOWN DOSE AND FREQUENCY
     Route: 065
     Dates: start: 20070623, end: 20070624
  9. CLADRIBINE [Concomitant]
     Indication: HAIRY CELL LEUKAEMIA
     Dosage: UNKNOWN DOSE AND FREQUENCY
     Route: 065
     Dates: start: 20070612, end: 20070616
  10. SPECIAFOLDINE [Concomitant]
     Dosage: UNKNOWN DOSE AND FREQUENCY
     Route: 065
     Dates: start: 20070612
  11. CIFLOX [Concomitant]
     Dosage: UNKNOWN DOSE AND FREQUENCY
     Route: 065
     Dates: start: 20070622, end: 20070625
  12. CEFROM [Suspect]
     Indication: PYREXIA
     Dosage: 4 G, UNKNOWN FREQUENCY
     Route: 042
     Dates: start: 20070623, end: 20070625
  13. TOBRAMYCIN [Suspect]
     Indication: PYREXIA
     Dosage: 150 MG, UNKNOWN FREQUENCY
     Route: 042
     Dates: start: 20070623, end: 20070625

REACTIONS (3)
  - LIP SWELLING [None]
  - RASH ERYTHEMATOUS [None]
  - RASH MACULO-PAPULAR [None]
